FAERS Safety Report 12846450 (Version 2)
Quarter: 2016Q4

REPORT INFORMATION
  Report Type: Spontaneous
  Country: SK (occurrence: SK)
  Receive Date: 20161014
  Receipt Date: 20161026
  Transmission Date: 20170207
  Serious: Yes (Death)
  Sender: FDA-Public Use
  Company Number: SK-PFIZER INC-2016466211

PATIENT
  Sex: Male

DRUGS (1)
  1. XALKORI [Suspect]
     Active Substance: CRIZOTINIB
     Dosage: UNK
     Dates: start: 201602

REACTIONS (1)
  - Neoplasm progression [Fatal]
